FAERS Safety Report 18382067 (Version 5)
Quarter: 2021Q2

REPORT INFORMATION
  Report Type: Spontaneous
  Country: JP (occurrence: JP)
  Receive Date: 20201014
  Receipt Date: 20210506
  Transmission Date: 20210717
  Serious: Yes (Hospitalization, Other)
  Sender: FDA-Public Use
  Company Number: JP-UNITED THERAPEUTICS-UNT-2020-003487

PATIENT
  Age: 35 Year
  Sex: Female

DRUGS (5)
  1. REMODULIN [Suspect]
     Active Substance: TREPROSTINIL
     Indication: PULMONARY ARTERIAL HYPERTENSION
     Dosage: 0.00125 ?G/KG, CONTINUING
     Route: 058
     Dates: start: 20200227
  2. REMODULIN [Suspect]
     Active Substance: TREPROSTINIL
     Dosage: UNK, CONTINUING (100 MG)
     Route: 058
     Dates: start: 2020
  3. REMODULIN [Suspect]
     Active Substance: TREPROSTINIL
     Indication: MIXED CONNECTIVE TISSUE DISEASE
     Dosage: UNK, CONTINUING (50 MG)
     Route: 058
     Dates: start: 2020
  4. UPTRAVI [Concomitant]
     Active Substance: SELEXIPAG
     Indication: PULMONARY ARTERIAL HYPERTENSION
     Dosage: 1.6 MG/DAY
     Route: 048
  5. UPTRAVI [Concomitant]
     Active Substance: SELEXIPAG
     Indication: MIXED CONNECTIVE TISSUE DISEASE

REACTIONS (19)
  - Injection site pain [Not Recovered/Not Resolved]
  - Insomnia [Not Recovered/Not Resolved]
  - Haematuria [Recovered/Resolved]
  - Injection site pruritus [Not Recovered/Not Resolved]
  - Constipation [Unknown]
  - Nausea [Unknown]
  - Injection site haemorrhage [Unknown]
  - Injection site pruritus [Not Recovered/Not Resolved]
  - Injection site induration [Recovering/Resolving]
  - Infusion site extravasation [Unknown]
  - Faeces soft [Unknown]
  - C-reactive protein increased [Unknown]
  - Injection site erythema [Not Recovered/Not Resolved]
  - Headache [Unknown]
  - White blood cell count increased [Unknown]
  - Injection site infection [Unknown]
  - Meningitis [Unknown]
  - Catheter site extravasation [Unknown]
  - Pyrexia [Unknown]

NARRATIVE: CASE EVENT DATE: 2020
